FAERS Safety Report 6623758-X (Version None)
Quarter: 2010Q1

REPORT INFORMATION
  Report Type: 
  Country: None (occurrence: None)
  Receive Date: 20100310
  Receipt Date: 20091117
  Transmission Date: 20100710
  Serious: No
  Sender: FDA-Public Use
  Company Number: US-BIOGENIDEC-2009BI037638

PATIENT
  Age: 51 Year
  Sex: Male

DRUGS (1)
  1. AVONEX [Suspect]
     Indication: MULTIPLE SCLEROSIS
     Route: 030
     Dates: start: 20071218

REACTIONS (4)
  - ABDOMINAL DISCOMFORT [None]
  - ANXIETY [None]
  - HYPERPHAGIA [None]
  - SENSATION OF HEAVINESS [None]
